FAERS Safety Report 6683085-1 (Version None)
Quarter: 2010Q2

REPORT INFORMATION
  Report Type: 
  Country: None (occurrence: None)
  Receive Date: 20100415
  Receipt Date: 20100409
  Transmission Date: 20101027
  Serious: Yes (Death, Hospitalization)
  Sender: FDA-Public Use
  Company Number: PHHY2010IN04851

PATIENT
  Age: 22 Year
  Sex: Male

DRUGS (5)
  1. SEBIVO [Suspect]
     Indication: HEPATITIS B
     Dosage: 600 MG, UNK
     Route: 048
     Dates: start: 20090201, end: 20100101
  2. SEBIVO [Suspect]
     Indication: HEPATIC CIRRHOSIS
  3. OMEPRAZOLE [Concomitant]
  4. OCTREOTIDE ACETATE [Concomitant]
  5. MEROPENEM [Concomitant]

REACTIONS (2)
  - HEPATIC FAILURE [None]
  - OESOPHAGEAL VARICES HAEMORRHAGE [None]
